FAERS Safety Report 9970388 (Version 1)
Quarter: 2014Q1

REPORT INFORMATION
  Report Type: Spontaneous
  Country: US (occurrence: None)
  Receive Date: 20140305
  Receipt Date: 20140305
  Transmission Date: 20141002
  Serious: No
  Sender: FDA-Public Use
  Company Number: None

PATIENT
  Age: 58 Year
  Sex: Female
  Weight: 83.92 kg

DRUGS (4)
  1. RECLAST [Suspect]
     Indication: OSTEOPOROSIS
     Dosage: ANNUALLY, INTO A VEIN
     Dates: start: 20140215, end: 20140215
  2. DICLOFENAC SODIUM [Concomitant]
  3. OMEPRAZOLE DR [Concomitant]
  4. CITRACEL CALCIUM CITRATE [Concomitant]

REACTIONS (4)
  - Influenza like illness [None]
  - Impaired work ability [None]
  - Iritis [None]
  - Vision blurred [None]
